FAERS Safety Report 7326824-9 (Version None)
Quarter: 2011Q1

REPORT INFORMATION
  Report Type: 
  Country: None (occurrence: None)
  Receive Date: 20110302
  Receipt Date: 20100311
  Transmission Date: 20110831
  Serious: Yes (Other)
  Sender: FDA-Public Use
  Company Number: US-PFIZER INC-2010032463

PATIENT
  Sex: Female
  Weight: 81.633 kg

DRUGS (3)
  1. PAXIL [Concomitant]
     Indication: ELECTROLYTE IMBALANCE
     Dosage: 22 MG, 1X/DAY
  2. DILANTIN-125 [Suspect]
     Indication: CONVULSION
     Dosage: TOTAL DAILY DOSE OF 500 MG DIVIDED 3X/DAY
     Route: 048
  3. LIPITOR [Concomitant]
     Indication: BLOOD CHOLESTEROL INCREASED
     Dosage: 20 MG, 1X/DAY
     Route: 048

REACTIONS (2)
  - PRODUCT SUBSTITUTION ISSUE [None]
  - CONVULSION [None]
